FAERS Safety Report 21135933 (Version 2)
Quarter: 2022Q3

REPORT INFORMATION
  Report Type: Spontaneous
  Country: US (occurrence: US)
  Receive Date: 20220727
  Receipt Date: 20220729
  Transmission Date: 20221026
  Serious: No
  Sender: FDA-Public Use
  Company Number: US-NOVARTISTESTPH-NVSC2022US168086

PATIENT
  Sex: Female

DRUGS (1)
  1. BETOPTIC S [Suspect]
     Active Substance: BETAXOLOL HYDROCHLORIDE
     Indication: Product used for unknown indication
     Dosage: 15 ML
     Route: 065

REACTIONS (4)
  - Eye irritation [Unknown]
  - Visual impairment [Unknown]
  - Product dose omission issue [Unknown]
  - Product packaging quantity issue [Unknown]
